FAERS Safety Report 8473069-5 (Version None)
Quarter: 2012Q2

REPORT INFORMATION
  Report Type: 
  Country: None (occurrence: None)
  Receive Date: 20120627
  Receipt Date: 20120621
  Transmission Date: 20120825
  Serious: Yes (Death, Other)
  Sender: FDA-Public Use
  Company Number: JP-ROXANE LABORATORIES, INC.-2012-RO-01456RO

PATIENT
  Age: 67 Year
  Sex: Male

DRUGS (4)
  1. TACROLIMUS [Suspect]
     Indication: LIVER TRANSPLANT
  2. VALGANCICLOVIR [Suspect]
     Indication: CYTOMEGALOVIRUS TEST POSITIVE
  3. STEROID [Concomitant]
     Indication: LIVER TRANSPLANT
  4. MYCOPHENOLATE MOFETIL [Suspect]
     Indication: LIVER TRANSPLANT

REACTIONS (2)
  - CYTOMEGALOVIRUS TEST POSITIVE [None]
  - DEATH [None]
